FAERS Safety Report 4884578-X (Version None)
Quarter: 2006Q1

REPORT INFORMATION
  Report Type: 
  Country: None (occurrence: None)
  Receive Date: 20060119
  Receipt Date: 20060109
  Transmission Date: 20060701
  Serious: Yes (Hospitalization)
  Sender: FDA-Public Use
  Company Number: FR-BRISTOL-MYERS SQUIBB COMPANY-13242813

PATIENT
  Age: 55 Year
  Sex: Male
  Weight: 82 kg

DRUGS (11)
  1. TAXOL [Suspect]
     Indication: TONGUE NEOPLASM MALIGNANT STAGE UNSPECIFIED
     Route: 042
     Dates: end: 20050624
  2. CARBOPLATINE [Suspect]
     Indication: TONGUE NEOPLASM MALIGNANT STAGE UNSPECIFIED
     Route: 042
     Dates: end: 20050624
  3. STILNOX [Concomitant]
  4. MOPRAL [Concomitant]
  5. ELISOR [Concomitant]
  6. TEGRETOL [Concomitant]
  7. DURAGESIC-100 [Concomitant]
  8. FORLAX [Concomitant]
  9. PREVISCAN [Concomitant]
  10. LOPRESSOR [Concomitant]
  11. SOLU-MEDROL [Concomitant]

REACTIONS (5)
  - ANAEMIA [None]
  - ASTHENIA [None]
  - DYSPNOEA [None]
  - PANCYTOPENIA [None]
  - VERTIGO [None]
